FAERS Safety Report 8598541-9 (Version None)
Quarter: 2012Q3

REPORT INFORMATION
  Report Type: 
  Country: None (occurrence: None)
  Receive Date: 20120816
  Receipt Date: 20120814
  Transmission Date: 20120928
  Serious: Yes (Hospitalization)
  Sender: FDA-Public Use
  Company Number: GB-TEVA-353684ISR

PATIENT
  Age: 70 Year
  Sex: Female
  Weight: 60 kg

DRUGS (9)
  1. MEMANTINE HCL [Suspect]
     Indication: DEMENTIA ALZHEIMER'S TYPE
     Route: 048
  2. SOLIFENACIN SUCCINATE [Concomitant]
  3. TRIMETHOPRIM [Suspect]
     Indication: URINARY TRACT INFECTION
     Route: 048
     Dates: start: 20120730, end: 20120803
  4. ANTIBIOTICS NOS [Concomitant]
  5. OMEPRAZOLE [Concomitant]
  6. CALCICHEW D3 [Concomitant]
  7. ZOPICLONE [Concomitant]
  8. MIRTAZAPINE [Concomitant]
  9. LAXIDO [Concomitant]

REACTIONS (4)
  - CONDITION AGGRAVATED [None]
  - TOXICITY TO VARIOUS AGENTS [None]
  - FALL [None]
  - MYOCLONUS [None]
